FAERS Safety Report 5810313-4 (Version None)
Quarter: 2008Q3

REPORT INFORMATION
  Report Type: 
  Country: None (occurrence: None)
  Receive Date: 20080715
  Receipt Date: 20080326
  Transmission Date: 20090109
  Serious: No
  Sender: FDA-Public Use
  Company Number: A0717586A

PATIENT
  Age: 23 Year
  Sex: Female

DRUGS (5)
  1. IMITREX [Suspect]
     Indication: MIGRAINE
     Route: 048
     Dates: start: 20080324, end: 20080324
  2. MAGNESIUM OXIDE [Concomitant]
  3. ALBENZA [Concomitant]
  4. COENZYME Q10 [Concomitant]
  5. MAXALT [Concomitant]

REACTIONS (1)
  - ADVERSE REACTION [None]
